FAERS Safety Report 21587449 (Version 1)
Quarter: 2022Q4

REPORT INFORMATION
  Report Type: Spontaneous
  Country: US (occurrence: US)
  Receive Date: 20221114
  Receipt Date: 20221114
  Transmission Date: 20230113
  Serious: No
  Sender: FDA-Public Use
  Company Number: US-BRISTOL-MYERS SQUIBB COMPANY-2022-136528

PATIENT
  Age: 87 Year
  Sex: Female

DRUGS (1)
  1. REVLIMID [Suspect]
     Active Substance: LENALIDOMIDE
     Indication: Thrombocytopenia
     Dosage: FREQUENCY: TAKE 1 CAPSULE BY MOUTH EVERY DAY ON DAYS 1-14 OF EACH 21 DAY CHEMOTHERAPY CYCLE
     Route: 048

REACTIONS (2)
  - Skin discolouration [Unknown]
  - Off label use [Unknown]
